FAERS Safety Report 8909687 (Version 2)
Quarter: 2012Q4

REPORT INFORMATION
  Report Type: 
  Country: US (occurrence: US)
  Receive Date: 20121115
  Receipt Date: 20121116
  Transmission Date: 20130627
  Serious: Yes (Other)
  Sender: FDA-Public Use
  Company Number: US-US-EMD SERONO, INC.-7172929

PATIENT
  Age: 49 Year
  Sex: Male

DRUGS (2)
  1. SOMATROPIN [Suspect]
     Indication: PROPHYLAXIS
     Route: 058
  2. TESTOSTERONE [Concomitant]
     Indication: PROPHYLAXIS

REACTIONS (2)
  - Malignant melanoma [Unknown]
  - Drug abuse [Unknown]
